FAERS Safety Report 11635022 (Version 1)
Quarter: 2015Q4

REPORT INFORMATION
  Report Type: Spontaneous
  Country: US (occurrence: US)
  Receive Date: 20151015
  Receipt Date: 20151015
  Transmission Date: 20160304
  Serious: No
  Sender: FDA-Public Use
  Company Number: US-SA-2015SA025231

PATIENT
  Age: 57 Year
  Sex: Male
  Weight: 90.7 kg

DRUGS (10)
  1. LUMIZYME [Suspect]
     Active Substance: ALGLUCOSIDASE ALFA
     Indication: GLYCOGEN STORAGE DISORDER
     Route: 042
     Dates: start: 20140325
  2. DILTIAZEM [Concomitant]
     Active Substance: DILTIAZEM
  3. HYDROCHLOROTHIAZIDE. [Concomitant]
     Active Substance: HYDROCHLOROTHIAZIDE
  4. ROBITUSSIN (GUAIFENESIN) [Concomitant]
     Active Substance: GUAIFENESIN
  5. LISINOPRIL. [Concomitant]
     Active Substance: LISINOPRIL
  6. EPIPEN [Concomitant]
     Active Substance: EPINEPHRINE
  7. HEPARIN [Concomitant]
     Active Substance: HEPARIN SODIUM
  8. LUMIZYME [Suspect]
     Active Substance: ALGLUCOSIDASE ALFA
     Indication: GLYCOGEN STORAGE DISORDER
     Route: 042
     Dates: start: 20140325
  9. SODIUM CHLORIDE. [Concomitant]
     Active Substance: SODIUM CHLORIDE
  10. PAXIL [Concomitant]
     Active Substance: PAROXETINE HYDROCHLORIDE

REACTIONS (1)
  - Back pain [Unknown]

NARRATIVE: CASE EVENT DATE: 201502
